FAERS Safety Report 9183813 (Version 1)
Quarter: 2013Q1

REPORT INFORMATION
  Report Type: Spontaneous
  Country: US (occurrence: US)
  Receive Date: 20130322
  Receipt Date: 20130322
  Transmission Date: 20140127
  Serious: No
  Sender: FDA-Public Use
  Company Number: US-BRISTOL-MYERS SQUIBB COMPANY-16618175

PATIENT
  Age: 68 Year
  Sex: Female
  Weight: 63.94 kg

DRUGS (1)
  1. ERBITUX [Suspect]
     Indication: THROAT CANCER
     Dosage: NO OF TREATMENTS:4

REACTIONS (8)
  - Rash vesicular [Unknown]
  - Pain [Unknown]
  - Skin fissures [Unknown]
  - Pruritus [Unknown]
  - Trichorrhexis [Unknown]
  - Malaise [Unknown]
  - Vomiting [Unknown]
  - Odynophagia [Unknown]
